FAERS Safety Report 4404570-9 (Version None)
Quarter: 2004Q3

REPORT INFORMATION
  Report Type: 
  Country: None (occurrence: None)
  Receive Date: 20040720
  Receipt Date: 20040705
  Transmission Date: 20050211
  Serious: Yes (Life-Threatening, Hospitalization)
  Sender: FDA-Public Use
  Company Number: DE-JNJFOC-20040604394

PATIENT
  Age: 42 Year
  Sex: Male
  Weight: 105 kg

DRUGS (5)
  1. TOPAMAX [Suspect]
     Indication: EPILEPSY
     Dosage: 300 MG, 1 IN 1 DAY, ORAL
     Route: 048
     Dates: start: 20030901, end: 20040601
  2. KEPPRA [Suspect]
     Indication: EPILEPSY
     Dosage: 500 MG, 2 IN 1 DAY, ORAL
     Route: 048
     Dates: start: 20030901, end: 20040601
  3. ZINACEF (CEFUROXINE) [Suspect]
     Indication: LOBAR PNEUMONIA
  4. METRONIDAZOLE [Suspect]
     Indication: LOBAR PNEUMONIA
  5. LEVOTHYROXINE SODIUM [Concomitant]

REACTIONS (25)
  - ASCITES [None]
  - BACTERIAL INFECTION [None]
  - BLOOD PH INCREASED [None]
  - BLOOD THYROID STIMULATING HORMONE DECREASED [None]
  - CANDIDIASIS [None]
  - CHEST PAIN [None]
  - CHOLELITHIASIS [None]
  - DERMATITIS ALLERGIC [None]
  - DRUG TOXICITY [None]
  - FUNGUS SPUTUM TEST POSITIVE [None]
  - GASTRODUODENITIS [None]
  - GASTROINTESTINAL OEDEMA [None]
  - GRAND MAL CONVULSION [None]
  - HYPERTHYROIDISM [None]
  - INJURY [None]
  - PANCREATITIS NECROTISING [None]
  - PCO2 DECREASED [None]
  - PLEURAL EFFUSION [None]
  - PNEUMONIA [None]
  - PO2 DECREASED [None]
  - SHOCK [None]
  - SPLENOMEGALY [None]
  - SPUTUM CULTURE POSITIVE [None]
  - SUBILEUS [None]
  - URINARY TRACT DISORDER [None]
